FAERS Safety Report 5212050-6 (Version None)
Quarter: 2007Q1

REPORT INFORMATION
  Report Type: 
  Country: None (occurrence: None)
  Receive Date: 20070118
  Receipt Date: 20070109
  Transmission Date: 20070707
  Serious: Yes (Hospitalization)
  Sender: FDA-Public Use
  Company Number: FR-ELI_LILLY_AND_COMPANY-FR200701001466

PATIENT
  Age: 60 Year
  Sex: Male

DRUGS (7)
  1. ALIMTA [Suspect]
     Indication: LUNG NEOPLASM MALIGNANT
     Dosage: UNK, OTHER
     Route: 042
     Dates: start: 20061129, end: 20061129
  2. SPECIAFOLDINE [Concomitant]
     Indication: VITAMIN SUPPLEMENTATION
     Dosage: UNK, UNKNOWN
     Route: 065
  3. PREGABALIN [Concomitant]
     Dosage: UNK, UNKNOWN
     Route: 065
  4. ESCITALOPRAM OXALATE [Concomitant]
     Dosage: UNK, UNKNOWN
     Route: 065
  5. INIPOMP [Concomitant]
     Dosage: UNK, UNKNOWN
     Route: 065
  6. CRESTOR [Concomitant]
     Dosage: UNK, UNKNOWN
     Route: 065
  7. ZOLPIDEM TARTRATE [Concomitant]
     Dosage: UNK, UNKNOWN
     Route: 065

REACTIONS (4)
  - LEUKOPENIA [None]
  - PYREXIA [None]
  - THROMBOCYTOPENIC PURPURA [None]
  - TOXIC SKIN ERUPTION [None]
